FAERS Safety Report 6835196-5 (Version None)
Quarter: 2010Q3

REPORT INFORMATION
  Report Type: 
  Country: None (occurrence: None)
  Receive Date: 20100713
  Receipt Date: 20100603
  Transmission Date: 20110219
  Serious: No
  Sender: FDA-Public Use
  Company Number: 2010BI004390

PATIENT
  Age: 48 Year
  Sex: Female

DRUGS (1)
  1. TYSABRI [Suspect]
     Indication: MULTIPLE SCLEROSIS
     Route: 042
     Dates: start: 20070502

REACTIONS (5)
  - BUNION [None]
  - EXOSTOSIS [None]
  - FOOT OPERATION [None]
  - LOCALISED INFECTION [None]
  - POSTOPERATIVE WOUND INFECTION [None]
